FAERS Safety Report 10501964 (Version 1)
Quarter: 2014Q4

REPORT INFORMATION
  Report Type: Spontaneous
  Country: JM (occurrence: JP)
  Receive Date: 20141007
  Receipt Date: 20141007
  Transmission Date: 20150528
  Serious: Yes (Death, Other)
  Sender: FDA-Public Use
  Company Number: JP-TEVA-513986ISR

PATIENT
  Age: 69 Year
  Sex: Female

DRUGS (8)
  1. VINCRISTINE [Suspect]
     Active Substance: VINCRISTINE
     Dosage: LSG15 PROTOCOL
  2. DOXORUBICIN [Suspect]
     Active Substance: DOXORUBICIN
     Dosage: LSG15 PROTOCOL
  3. RANIMUSTINE [Suspect]
     Active Substance: RANIMUSTINE
     Dosage: LSG15 PROTOCOL
  4. CARBOPLATIN. [Suspect]
     Active Substance: CARBOPLATIN
     Dosage: LSG15 PROTOCOL
  5. VINDESINE [Suspect]
     Active Substance: VINDESINE
     Dosage: LSG15 PROTOCOL
  6. ETOPOSIDE. [Suspect]
     Active Substance: ETOPOSIDE
     Dosage: LSG15 PROTOCOL
  7. CYCLOPHOSPHAMID [Suspect]
     Active Substance: CYCLOPHOSPHAMIDE
     Dosage: LSG15 PROTOCOL
  8. PREDNISONE. [Suspect]
     Active Substance: PREDNISONE
     Dosage: LSG15 PROTOCOL

REACTIONS (3)
  - Adult T-cell lymphoma/leukaemia [Not Recovered/Not Resolved]
  - Respiratory failure [Fatal]
  - Septic shock [Fatal]
